FAERS Safety Report 9111829 (Version 1)
Quarter: 2013Q1

REPORT INFORMATION
  Report Type: Spontaneous
  Country: US (occurrence: US)
  Receive Date: 20130219
  Receipt Date: 20130219
  Transmission Date: 20140127
  Serious: No
  Sender: FDA-Public Use
  Company Number: US-BRISTOL-MYERS SQUIBB COMPANY-16666265

PATIENT
  Age: 64 Year
  Sex: Female
  Weight: 48.98 kg

DRUGS (1)
  1. ABATACEPT SUBQ INJECTION 125MG/ML [Suspect]
     Indication: RHEUMATOID ARTHRITIS
     Dosage: LAST INJECTION ON 30MAY2012 ?NO OF INJ:08
     Route: 058

REACTIONS (12)
  - Diarrhoea [Unknown]
  - Nausea [Unknown]
  - Vomiting [Unknown]
  - Pyrexia [Unknown]
  - Malaise [Unknown]
  - Eating disorder [Unknown]
  - Local swelling [Unknown]
  - Pain in extremity [Unknown]
  - Cholelithiasis [Unknown]
  - Blood sodium decreased [Unknown]
  - Muscle spasms [Unknown]
  - Lung disorder [Unknown]
